FAERS Safety Report 14758359 (Version 2)
Quarter: 2018Q3

REPORT INFORMATION
  Report Type: Spontaneous
  Country: US (occurrence: US)
  Receive Date: 20180413
  Receipt Date: 20180704
  Transmission Date: 20181010
  Serious: No
  Sender: FDA-Public Use
  Company Number: US-PFIZER INC-2018148640

PATIENT
  Age: 58 Year
  Sex: Female
  Weight: 88 kg

DRUGS (2)
  1. NICOTROL [Suspect]
     Active Substance: NICOTINE
     Indication: SMOKING CESSATION THERAPY
     Dosage: UNK, AS NEEDED (1?2 SPRAYS/HOUR PRN MAXIMUM DOSE 10 SPRAYS/HR NO TO EXCEED 80 SPRAYS/DAY)
     Route: 055
     Dates: start: 20180213, end: 20180327
  2. NICOTROL [Suspect]
     Active Substance: NICOTINE
     Dosage: 10MG?ML; 1?2 SPRAYS PER HOUR, AS NEEDED
     Dates: start: 20180330, end: 20180330

REACTIONS (3)
  - Vertigo [Recovering/Resolving]
  - Dizziness [Recovered/Resolved]
  - Nausea [Not Recovered/Not Resolved]

NARRATIVE: CASE EVENT DATE: 20180302
